FAERS Safety Report 6196443-9 (Version None)
Quarter: 2009Q2

REPORT INFORMATION
  Report Type: 
  Country: None (occurrence: None)
  Receive Date: 20090520
  Receipt Date: 20090513
  Transmission Date: 20091009
  Serious: Yes (Life-Threatening, Hospitalization)
  Sender: FDA-Public Use
  Company Number: NL-CELGENEUS-114-21880-09050895

PATIENT
  Sex: Female

DRUGS (2)
  1. REVLIMID [Suspect]
     Indication: MULTIPLE MYELOMA
     Route: 048
     Dates: start: 20090401
  2. DEXAMETHASONE 4MG TAB [Concomitant]
     Indication: MULTIPLE MYELOMA
     Route: 048
     Dates: start: 20090401, end: 20090401

REACTIONS (1)
  - ISCHAEMIC CEREBRAL INFARCTION [None]
